FAERS Safety Report 10018718 (Version 1)
Quarter: 2014Q1

REPORT INFORMATION
  Report Type: Spontaneous
  Country: US (occurrence: US)
  Receive Date: 20140318
  Receipt Date: 20140318
  Transmission Date: 20141002
  Serious: No
  Sender: FDA-Public Use
  Company Number: US-PFIZER INC-2014074161

PATIENT
  Age: 68 Year
  Sex: Male

DRUGS (3)
  1. LIPITOR [Suspect]
     Dosage: UNK
  2. CO Q10 [Suspect]
     Dosage: UNK
  3. LESCOL XL [Suspect]
     Dosage: 80 MG, UNK

REACTIONS (2)
  - Pain [Unknown]
  - Blood cholesterol abnormal [Unknown]
